FAERS Safety Report 23157327 (Version 1)
Quarter: 2023Q4

REPORT INFORMATION
  Report Type: Spontaneous
  Country: AU (occurrence: AU)
  Receive Date: 20231108
  Receipt Date: 20231108
  Transmission Date: 20240109
  Serious: No
  Sender: FDA-Public Use
  Company Number: AU-ALKEM LABORATORIES LIMITED-AU-ALKEM-2023-12158

PATIENT
  Age: 68 Year

DRUGS (1)
  1. DICLOFENAC [Suspect]
     Active Substance: DICLOFENAC
     Indication: Product used for unknown indication
     Dosage: UNK
     Route: 065

REACTIONS (7)
  - Peripheral swelling [Unknown]
  - Pharyngeal swelling [Unknown]
  - Speech disorder [Unknown]
  - Swelling face [Unknown]
  - Pruritus [Unknown]
  - Dyspnoea [Unknown]
  - Hypersensitivity [Unknown]
